FAERS Safety Report 14376189 (Version 2)
Quarter: 2018Q1

REPORT INFORMATION
  Report Type: Spontaneous
  Country: ID (occurrence: ID)
  Receive Date: 20180111
  Receipt Date: 20180117
  Transmission Date: 20180509
  Serious: Yes (Hospitalization, Other)
  Sender: FDA-Public Use
  Company Number: ID-PFIZER INC-2018004116

PATIENT
  Age: 28 Year
  Sex: Female

DRUGS (4)
  1. PROVERA [Suspect]
     Active Substance: MEDROXYPROGESTERONE ACETATE
     Indication: ENDOMETRIAL DISORDER
     Dosage: 5 MG, 1X/DAY
     Route: 048
     Dates: start: 20171216, end: 20171221
  2. PROVERA [Suspect]
     Active Substance: MEDROXYPROGESTERONE ACETATE
     Indication: ENDOMETRIAL THICKENING
     Dosage: UNK
     Route: 048
     Dates: start: 20171117, end: 20171121
  3. PROVERA [Suspect]
     Active Substance: MEDROXYPROGESTERONE ACETATE
     Indication: HORMONE LEVEL ABNORMAL
  4. PROVERA [Suspect]
     Active Substance: MEDROXYPROGESTERONE ACETATE
     Indication: MENSTRUAL DISORDER

REACTIONS (9)
  - Dizziness [Recovered/Resolved]
  - Abdominal distension [Recovered/Resolved]
  - Menorrhagia [Recovering/Resolving]
  - Pallor [Recovered/Resolved]
  - Anaemia [Unknown]
  - Ulcer [Unknown]
  - Haemoglobin decreased [Recovered/Resolved]
  - Nausea [Recovered/Resolved]
  - Disease recurrence [Unknown]

NARRATIVE: CASE EVENT DATE: 20171214
